FAERS Safety Report 23221990 (Version 3)
Quarter: 2024Q1

REPORT INFORMATION
  Report Type: Other
  Country: US (occurrence: US)
  Receive Date: 20231123
  Receipt Date: 20240326
  Transmission Date: 20240409
  Serious: No
  Sender: FDA-Public Use
  Company Number: US-TRAVERE-2023TVT00750

PATIENT
  Sex: Male
  Weight: 9.31 kg

DRUGS (8)
  1. FILSPARI [Suspect]
     Active Substance: SPARSENTAN
     Indication: IgA nephropathy
     Route: 048
     Dates: start: 20231104
  2. FILSPARI [Suspect]
     Active Substance: SPARSENTAN
     Route: 048
     Dates: start: 20231104
  3. TYLENOL [Concomitant]
     Active Substance: ACETAMINOPHEN
  4. COLCHICINE [Concomitant]
     Active Substance: COLCHICINE
  5. ALLOPURINOL [Concomitant]
     Active Substance: ALLOPURINOL
  6. FARXIGA [Concomitant]
     Active Substance: DAPAGLIFLOZIN PROPANEDIOL
  7. SPIRONOLACTONE [Concomitant]
     Active Substance: SPIRONOLACTONE
  8. AMLODIPINE BESYLATE [Concomitant]
     Active Substance: AMLODIPINE BESYLATE

REACTIONS (4)
  - Peripheral swelling [Recovered/Resolved]
  - Protein urine present [Recovered/Resolved]
  - Blister [Unknown]
  - Rash [Unknown]
